FAERS Safety Report 4304590-9 (Version None)
Quarter: 2004Q1

REPORT INFORMATION
  Report Type: 
  Country: None (occurrence: None)
  Receive Date: 20040226
  Receipt Date: 20040219
  Transmission Date: 20041129
  Serious: Yes (Hospitalization)
  Sender: FDA-Public Use
  Company Number: 200412301GDDC

PATIENT
  Age: 47 Year
  Sex: Female

DRUGS (12)
  1. FLUDEX [Suspect]
     Indication: DRUG USE FOR UNKNOWN INDICATION
     Route: 048
     Dates: start: 20031001, end: 20031001
  2. SEROPRAM [Suspect]
     Indication: DRUG USE FOR UNKNOWN INDICATION
     Route: 048
     Dates: start: 20031001, end: 20031001
  3. XANAX [Concomitant]
  4. LEXOMIL [Concomitant]
     Dates: start: 20031001, end: 20031001
  5. VOLTAREN [Concomitant]
     Dates: start: 20031001, end: 20031001
  6. PARACETAMOL [Concomitant]
     Dates: start: 20031001, end: 20031001
  7. DI-ANTALVIC [Concomitant]
     Dates: start: 20031001, end: 20031001
  8. SOLUPRED [Concomitant]
     Dates: start: 20031001, end: 20031001
  9. ORELOX [Concomitant]
     Dates: start: 20031001, end: 20031001
  10. ORACILLINE [Concomitant]
     Dates: start: 20031001, end: 20031001
  11. ETIOVEN [Concomitant]
  12. SURGESTONE [Concomitant]

REACTIONS (6)
  - BRADYCARDIA [None]
  - ELECTROCARDIOGRAM QT PROLONGED [None]
  - HYPOKALAEMIA [None]
  - INTENTIONAL OVERDOSE [None]
  - MULTIPLE DRUG OVERDOSE [None]
  - SOMNOLENCE [None]
